FAERS Safety Report 7351599-7 (Version None)
Quarter: 2011Q1

REPORT INFORMATION
  Report Type: 
  Country: None (occurrence: None)
  Receive Date: 20110315
  Receipt Date: 20110308
  Transmission Date: 20110831
  Serious: Yes (Hospitalization)
  Sender: FDA-Public Use
  Company Number: US-ELI_LILLY_AND_COMPANY-US201103003390

PATIENT
  Sex: Female
  Weight: 76.2 kg

DRUGS (10)
  1. MINOCYCLINE HCL [Concomitant]
     Dosage: 100 MG, DAILY (1/D)
     Route: 048
     Dates: start: 20110111
  2. ZOMETA [Concomitant]
     Dosage: 4 MG, UNK
     Route: 042
     Dates: start: 20110117
  3. PEMETREXED [Suspect]
     Indication: NON-SMALL CELL LUNG CANCER
     Dosage: 950 MG, UNK
     Dates: start: 20110117, end: 20110228
  4. CARBOPLATIN [Suspect]
     Indication: NON-SMALL CELL LUNG CANCER
     Dosage: 660 MG, UNK
     Dates: start: 20110117, end: 20110228
  5. ZOMETA [Concomitant]
     Dosage: 4 MG, UNK
     Route: 042
     Dates: start: 20110214
  6. CETUXIMAB [Suspect]
     Indication: NON-SMALL CELL LUNG CANCER
     Dosage: 470 MG, UNK
     Dates: start: 20110117, end: 20110228
  7. VITAMIN B-12 [Concomitant]
     Dosage: 1000 UG, UNK
     Route: 030
     Dates: start: 20110111
  8. COMPAZINE [Concomitant]
     Dosage: 10 MG, AS NEEDED
     Route: 048
     Dates: start: 20110117
  9. ADVAIR DISKUS 100/50 [Concomitant]
     Dosage: UNK, AS NEEDED
     Route: 045
  10. FOLIC ACID [Concomitant]
     Dosage: 1000 UG, DAILY (1/D)
     Route: 048
     Dates: start: 20110111

REACTIONS (1)
  - CEREBRAL ISCHAEMIA [None]
